FAERS Safety Report 8611120-X (Version None)
Quarter: 2012Q3

REPORT INFORMATION
  Report Type: 
  Country: None (occurrence: None)
  Receive Date: 20120822
  Receipt Date: 20120815
  Transmission Date: 20120928
  Serious: Yes (Death)
  Sender: FDA-Public Use
  Company Number: US-UCBSA-063748

PATIENT
  Age: 45 Year
  Sex: Male
  Weight: 87.08 kg

DRUGS (7)
  1. PIROXICAM [Concomitant]
     Route: 048
     Dates: end: 20120614
  2. FOLIC ACID [Concomitant]
     Indication: RHEUMATOID ARTHRITIS
     Route: 048
     Dates: start: 20110912, end: 20120614
  3. PREDNISONE TAB [Concomitant]
     Indication: JOINT SWELLING
     Dosage: DECREASING BY 5 MG PER WEEK
     Route: 048
     Dates: start: 20120321, end: 20120614
  4. METHOTREXATE [Concomitant]
     Indication: RHEUMATOID ARTHRITIS
     Route: 048
     Dates: start: 20110912, end: 20120614
  5. CIMZIA [Suspect]
     Indication: RHEUMATOID ARTHRITIS
     Route: 058
     Dates: start: 20120101
  6. CIMZIA [Suspect]
     Dosage: INDUCTION DOSES: WEEKS 0,2,4
     Dates: start: 20120521, end: 20120101
  7. PREDNISONE TAB [Concomitant]
     Indication: PAIN
     Dosage: DECREASING BY 5 MG PER WEEK
     Route: 048
     Dates: start: 20120321, end: 20120614

REACTIONS (1)
  - DEATH [None]
